FAERS Safety Report 4542086-X (Version None)
Quarter: 2004Q4

REPORT INFORMATION
  Report Type: 
  Country: None (occurrence: None)
  Receive Date: 20041227
  Receipt Date: 20041214
  Transmission Date: 20050328
  Serious: Yes (Hospitalization)
  Sender: FDA-Public Use
  Company Number: MK200412-0308-1

PATIENT
  Age: 30 Year
  Sex: Male

DRUGS (9)
  1. IMIPRAMINE HCL [Suspect]
     Indication: DEPRESSION
     Dosage: 225 MG
  2. CLOMIPRAMINE HCL [Suspect]
     Indication: DEPRESSION
     Dosage: 225 MG
  3. AMOXAPINE [Concomitant]
  4. TRAZODONE HCL [Concomitant]
  5. FLUVOXAMINE MALEATE [Concomitant]
  6. LITHIUM CARBONATE [Concomitant]
  7. MIANSERIN [Concomitant]
  8. SULPIRIDE [Concomitant]
  9. CARBAMAZEPINE [Concomitant]

REACTIONS (4)
  - CONDITION AGGRAVATED [None]
  - DEPRESSION [None]
  - DRUG INEFFECTIVE [None]
  - SUICIDAL IDEATION [None]
